FAERS Safety Report 23350989 (Version 1)
Quarter: 2023Q4

REPORT INFORMATION
  Report Type: Spontaneous
  Country: US (occurrence: None)
  Receive Date: 20231228
  Receipt Date: 20231228
  Transmission Date: 20240110
  Serious: No
  Sender: FDA-Public Use
  Company Number: None

PATIENT
  Sex: Female

DRUGS (1)
  1. PROLIA [Suspect]
     Active Substance: DENOSUMAB
     Indication: Osteoporosis
     Dosage: OTHER FREQUENCY : Q 6MONTHS;?
     Route: 058
     Dates: start: 20220328

REACTIONS (5)
  - Neck pain [None]
  - Arthralgia [None]
  - Muscle tightness [None]
  - Musculoskeletal chest pain [None]
  - Pain in extremity [None]
